FAERS Safety Report 5477700-8 (Version None)
Quarter: 2007Q4

REPORT INFORMATION
  Report Type: 
  Country: None (occurrence: None)
  Receive Date: 20071003
  Receipt Date: 20071003
  Transmission Date: 20080405
  Serious: Yes (Other)
  Sender: FDA-Public Use
  Company Number: None

PATIENT
  Sex: Female
  Weight: 68.4932 kg

DRUGS (1)
  1. BONIVA [Suspect]
     Indication: RESORPTION BONE INCREASED
     Dosage: 1 TABLET   1 TIME A MONTH   PO
     Route: 048
     Dates: start: 20071001, end: 20071001

REACTIONS (2)
  - CHEST DISCOMFORT [None]
  - INFLUENZA [None]
